FAERS Safety Report 24692129 (Version 1)
Quarter: 2024Q4

REPORT INFORMATION
  Report Type: Spontaneous
  Country: CN (occurrence: CN)
  Receive Date: 20241203
  Receipt Date: 20241203
  Transmission Date: 20250114
  Serious: Yes (Other)
  Sender: BAYER HEALTHCARE LLC
  Company Number: CN-BAYER-2024A166406

PATIENT
  Sex: Male

DRUGS (1)
  1. LORATADINE [Suspect]
     Active Substance: LORATADINE
     Indication: Hypersensitivity
     Dosage: 1 DF, QD
     Route: 048
     Dates: start: 2023, end: 202409

REACTIONS (14)
  - Angioedema [Recovering/Resolving]
  - Hypersensitivity [Recovering/Resolving]
  - Localised oedema [Recovering/Resolving]
  - Muscle oedema [Recovering/Resolving]
  - Ligament disorder [Recovering/Resolving]
  - Tendon disorder [Recovering/Resolving]
  - Periarthritis [Recovering/Resolving]
  - Myalgia [Recovering/Resolving]
  - Tendon pain [Recovering/Resolving]
  - Ligament pain [Recovering/Resolving]
  - Skin induration [Recovering/Resolving]
  - Musculoskeletal chest pain [Recovering/Resolving]
  - Sneezing [None]
  - Bone pain [None]

NARRATIVE: CASE EVENT DATE: 20240101
